FAERS Safety Report 25944277 (Version 1)
Quarter: 2025Q4

REPORT INFORMATION
  Report Type: Spontaneous
  Country: US (occurrence: US)
  Receive Date: 20251021
  Receipt Date: 20251021
  Transmission Date: 20260118
  Serious: Yes (Other)
  Sender: SHILPA MEDICARE
  Company Number: US-KOANAAP-SML-US-2025-00499

PATIENT
  Age: 83 Year
  Sex: Male

DRUGS (2)
  1. CAPECITABINE [Suspect]
     Active Substance: CAPECITABINE
     Indication: Adenocarcinoma gastric
     Dosage: NEOADJUVANT CHEMOTHERAPY WITH 6 CYCLES OF CAPECITABINE
  2. OXALIPLATIN [Suspect]
     Active Substance: OXALIPLATIN
     Indication: Adenocarcinoma gastric
     Dosage: NEOADJUVANT CHEMOTHERAPY WITH 6 CYCLES OF OXALIPLATIN

REACTIONS (2)
  - Minimal residual disease [Recovered/Resolved]
  - Thrombocytopenia [Unknown]
